FAERS Safety Report 5895451-2 (Version None)
Quarter: 2008Q3

REPORT INFORMATION
  Report Type: 
  Country: None (occurrence: None)
  Receive Date: 20080922
  Receipt Date: 20080912
  Transmission Date: 20090109
  Serious: Yes (Other)
  Sender: FDA-Public Use
  Company Number: ADE2008-0276

PATIENT
  Age: 64 Year
  Sex: Female

DRUGS (12)
  1. SIMVASTATIN [Suspect]
     Dosage: 20 MG
  2. VERAPAMIL [Suspect]
     Dosage: 240MG - QD
  3. ISOSORBIDE MONONITRATE [Concomitant]
  4. DIGOXIN [Concomitant]
  5. RISEDRONATE SODIUM [Concomitant]
  6. LEVOTHYROXINE SODIUM [Concomitant]
  7. DOXAZOSIN MESYLATE [Concomitant]
  8. CLOPIDOGREL [Concomitant]
  9. PREDNISOLONE [Concomitant]
  10. SALBUTAMOL INHALER [Concomitant]
  11. ACETAMINOPHEN [Concomitant]
  12. ADCAL D3 [Concomitant]

REACTIONS (3)
  - DRUG INTERACTION [None]
  - INSOMNIA [None]
  - PALPITATIONS [None]
